FAERS Safety Report 6728624-7 (Version None)
Quarter: 2010Q2

REPORT INFORMATION
  Report Type: 
  Country: None (occurrence: None)
  Receive Date: 20100517
  Receipt Date: 20100503
  Transmission Date: 20101027
  Serious: Yes (Other)
  Sender: FDA-Public Use
  Company Number: GT-ELI_LILLY_AND_COMPANY-GT201003004465

PATIENT
  Age: 50 Year
  Sex: Male

DRUGS (1)
  1. PROZAC [Suspect]
     Indication: DEPRESSION
     Dosage: 20 MG, EACH EVENING
     Route: 065
     Dates: start: 20060101, end: 20060101

REACTIONS (1)
  - SYNCOPE [None]
